FAERS Safety Report 6051213-7 (Version None)
Quarter: 2009Q1

REPORT INFORMATION
  Report Type: 
  Country: None (occurrence: None)
  Receive Date: 20090126
  Receipt Date: 20090121
  Transmission Date: 20090719
  Serious: Yes (Hospitalization)
  Sender: FDA-Public Use
  Company Number: US-KINGPHARMUSA00001-K200900053

PATIENT
  Age: 83 Year
  Sex: Male

DRUGS (1)
  1. ALTACE [Suspect]
     Indication: HYPERTENSION
     Dosage: 1.25 MG, QD
     Route: 048
     Dates: end: 20081020

REACTIONS (4)
  - HYPERCREATINAEMIA [None]
  - HYPERKALAEMIA [None]
  - RENAL FAILURE ACUTE [None]
  - VENOOCCLUSIVE DISEASE [None]
